FAERS Safety Report 19916599 (Version 1)
Quarter: 2021Q4

REPORT INFORMATION
  Report Type: Spontaneous
  Country: US (occurrence: US)
  Receive Date: 20211004
  Receipt Date: 20211004
  Transmission Date: 20220303
  Serious: Yes (Hospitalization)
  Sender: FDA-Public Use
  Company Number: None

PATIENT
  Sex: Male

DRUGS (6)
  1. ABIRATERONE ACETATE [Suspect]
     Active Substance: ABIRATERONE ACETATE
     Indication: Prostate cancer
     Dosage: TAKE 4 TABLETS (1,000 MG TOTAL) BY MOUITH DAILY
     Route: 048
     Dates: start: 20210619
  2. FINASTERIDE [Concomitant]
     Active Substance: FINASTERIDE
  3. LEVOTHYROXN TAB [Concomitant]
  4. NIFEDIPINE TAB [Concomitant]
  5. OMEPRAZOLE TAB [Concomitant]
  6. PREBIOTIC CAP [Concomitant]

REACTIONS (1)
  - Hospitalisation [None]
